FAERS Safety Report 8348170 (Version 2)
Quarter: 2013Q2

REPORT INFORMATION
  Report Type: Spontaneous
  Country: US (occurrence: None)
  Receive Date: 20111220
  Receipt Date: 20121227
  Transmission Date: 20140414
  Serious: Yes (Hospitalization)
  Sender: FDA-Public Use
  Company Number: PHEH2011US04644

PATIENT
  Age: 55 Year
  Sex: Female
  Weight: 105 kg

DRUGS (24)
  1. MYFORTIC [Suspect]
     Indication: RENAL TRANSPLANT
     Route: 048
     Dates: start: 20100329
  2. TYLOX (OXYCODONE HYDROCHLORIDE, PARACETAMOL) [Concomitant]
  3. LASIX (FUROSEMIDE) [Concomitant]
  4. CITALOPRAM (CITALOPRAM) [Concomitant]
  5. PROGRAF (TACROLIMUS) [Concomitant]
  6. COREG (CARVEDILOL) [Concomitant]
  7. TYLENOL (PARACETAMOL) [Concomitant]
  8. NITROSTAT (GLYCERYL TRINITRATE) [Concomitant]
  9. LORAZEPAM (LORAZEPAM) [Concomitant]
  10. K-DUR (POTASSIUM CHLORIDE) [Concomitant]
  11. ZOCOR (SIMVASTATIN) [Concomitant]
  12. PRILOSEC (OMEPRAZOLE) [Concomitant]
  13. PULMICORT (BUDESONIDE) [Concomitant]
  14. ERGOCALCIFEROL (ERGOCALCIFEROL) [Concomitant]
  15. ALBUTEROL SULFATE (SALBUTEROL SULFATE) [Concomitant]
  16. MEPRON (ATOVAQUONE) [Concomitant]
  17. OS-CAL + D (CALCIUM CARBONATE, COLECALCIFEROL) [Concomitant]
  18. LANTUS (INSULIN GLARGINE) [Concomitant]
  19. HUMALOG (INSULIN LISPRO) [Concomitant]
  20. NORVASC (AMLODIPINE BESILATE) [Concomitant]
  21. DELTASONE (PREDNISONE) [Concomitant]
  22. ASPIRIN (ACETYLSALICYLIC ACID) [Concomitant]
  23. IRON (IRON) [Concomitant]
  24. VITAMIN B12 (CYANOCOBALAMIN) [Concomitant]

REACTIONS (2)
  - Pancytopenia [None]
  - PNEUMONIA CYTOMEGALOVIRAL [None]
